FAERS Safety Report 8922364 (Version 1)
Quarter: 2012Q4

REPORT INFORMATION
  Report Type: 
  Country: ES (occurrence: ES)
  Receive Date: 20121126
  Receipt Date: 20121126
  Transmission Date: 20130627
  Serious: Yes (Life-Threatening, Hospitalization)
  Sender: FDA-Public Use
  Company Number: ES-JNJFOC-20121107081

PATIENT
  Age: 35 Year
  Sex: Male

DRUGS (6)
  1. PLENUR [Interacting]
     Indication: SCHIZOAFFECTIVE DISORDER
     Route: 048
     Dates: start: 201107, end: 20120629
  2. TOPAMAX [Concomitant]
     Indication: EPILEPSY
     Route: 048
     Dates: start: 200907, end: 20120629
  3. AKINETON RETARD [Concomitant]
     Indication: SCHIZOAFFECTIVE DISORDER
     Route: 048
     Dates: start: 200907, end: 20120629
  4. DEPAKINE CRONO [Concomitant]
     Indication: EPILEPSY
     Route: 048
     Dates: start: 200904, end: 20120629
  5. RISPERDAL CONSTA [Suspect]
     Indication: SCHIZOAFFECTIVE DISORDER
     Route: 030
     Dates: start: 2006, end: 20120629
  6. LEPONEX [Interacting]
     Indication: SCHIZOAFFECTIVE DISORDER
     Route: 048
     Dates: start: 201110, end: 20120629

REACTIONS (3)
  - Neuroleptic malignant syndrome [Recovered/Resolved]
  - Drug interaction [Unknown]
  - Prescribed overdose [Unknown]
